FAERS Safety Report 23869098 (Version 1)
Quarter: 2024Q2

REPORT INFORMATION
  Report Type: Spontaneous
  Country: AE (occurrence: AE)
  Receive Date: 20240517
  Receipt Date: 20240517
  Transmission Date: 20240716
  Serious: Yes (Other)
  Sender: FDA-Public Use
  Company Number: AE-002147023-NVSC2024AE097574

PATIENT
  Age: 42 Year
  Sex: Male

DRUGS (1)
  1. GLIVEC [Suspect]
     Active Substance: IMATINIB MESYLATE
     Indication: Chronic myeloid leukaemia
     Dosage: 400 MG, QD (FOR 4 MONTHS)
     Route: 065

REACTIONS (3)
  - Philadelphia chromosome positive [Unknown]
  - Gallbladder polyp [Unknown]
  - Treatment failure [Unknown]

NARRATIVE: CASE EVENT DATE: 20221027
